FAERS Safety Report 21425986 (Version 2)
Quarter: 2023Q1

REPORT INFORMATION
  Report Type: Report from Study
  Country: GB (occurrence: GB)
  Receive Date: 20221008
  Receipt Date: 20230310
  Transmission Date: 20230417
  Serious: Yes (Hospitalization, Other)
  Sender: FDA-Public Use
  Company Number: GB-BRISTOL-MYERS SQUIBB COMPANY-2022-110939

PATIENT
  Age: 84 Year
  Sex: Female

DRUGS (57)
  1. DEXAMETHASONE [Suspect]
     Active Substance: DEXAMETHASONE
     Indication: Product used for unknown indication
     Route: 048
     Dates: start: 20201111, end: 20201119
  2. DEXAMETHASONE [Suspect]
     Active Substance: DEXAMETHASONE
     Dosage: 6 MILLIGRAM DAILY; SPECIFY THE OTHER REASON FOR DOSE ADJUSTMENT: THIS WAS REDUCING EMERGENCY TREATME
     Route: 048
     Dates: start: 20200925, end: 20200925
  3. DEXAMETHASONE [Suspect]
     Active Substance: DEXAMETHASONE
     Dosage: 8 MILLIGRAM DAILY;
     Route: 048
     Dates: start: 20200923, end: 20200924
  4. DEXAMETHASONE [Suspect]
     Active Substance: DEXAMETHASONE
     Dosage: 4 MILLIGRAM DAILY;
     Route: 048
     Dates: start: 20201003, end: 20201005
  5. DEXAMETHASONE [Suspect]
     Active Substance: DEXAMETHASONE
     Dosage: REASON IF DOSE WAS NOT ADMINISTERED.: REST PERIOD,
     Route: 065
     Dates: start: 20201009, end: 20201015
  6. DEXAMETHASONE [Suspect]
     Active Substance: DEXAMETHASONE
     Dosage: 40 MILLIGRAM DAILY; ONCE, SPECIFY THE OTHER REASON FOR DOSE ADJUSTMENT: CHEMO REGIMEN,
     Route: 048
     Dates: start: 20201023, end: 20201023
  7. DEXAMETHASONE [Suspect]
     Active Substance: DEXAMETHASONE
     Dosage: SPECIFY THE OTHER REASON WHY DOSE WAS NOT ADMINISTERED.: CYCLE TREATMENT WAS DELAYED AS UNFORTUNATEL
     Route: 065
     Dates: start: 20201203, end: 20201210
  8. DEXAMETHASONE [Suspect]
     Active Substance: DEXAMETHASONE
     Route: 048
     Dates: start: 20201211, end: 20201231
  9. DEXAMETHASONE [Suspect]
     Active Substance: DEXAMETHASONE
     Dosage: BID,
     Route: 048
     Dates: start: 20200910, end: 20200916
  10. DEXAMETHASONE [Suspect]
     Active Substance: DEXAMETHASONE
     Dosage: 20 MILLIGRAM DAILY;
     Route: 048
     Dates: start: 20200926, end: 20200926
  11. DEXAMETHASONE [Suspect]
     Active Substance: DEXAMETHASONE
     Route: 065
     Dates: start: 20201016, end: 20201022
  12. DEXAMETHASONE [Suspect]
     Active Substance: DEXAMETHASONE
     Dosage: 20 MILLIGRAM DAILY;
     Route: 048
     Dates: start: 20201003, end: 20201003
  13. DEXAMETHASONE [Suspect]
     Active Substance: DEXAMETHASONE
     Dosage: 12 MILLIGRAM DAILY; SPECIFY THE OTHER REASON FOR DOSE ADJUSTMENT: THIS WAS REDUCING EMERGENCY TREATM
     Route: 048
     Dates: start: 20200917, end: 20200922
  14. DEXAMETHASONE [Suspect]
     Active Substance: DEXAMETHASONE
     Dosage: 2 MILLIGRAM DAILY;
     Route: 048
     Dates: start: 20201006, end: 20201008
  15. DEXAMETHASONE [Suspect]
     Active Substance: DEXAMETHASONE
     Dosage: 6 MILLIGRAM DAILY; QD, SPECIFY THE OTHER REASON FOR DOSE ADJUSTMENT: THIS WAS REDUCING DOSE OF EMERG
     Route: 048
     Dates: start: 20200927, end: 20200927
  16. DEXAMETHASONE [Suspect]
     Active Substance: DEXAMETHASONE
     Dosage: SPECIFY THE OTHER REASON FOR DOSE ADJUSTMENT: PART OF CHEMO REGIMEN,
     Route: 048
     Dates: start: 20200928, end: 20201002
  17. DEXAMETHASONE [Suspect]
     Active Substance: DEXAMETHASONE
     Route: 065
     Dates: start: 20201126, end: 20201126
  18. DEXAMETHASONE [Suspect]
     Active Substance: DEXAMETHASONE
     Route: 048
     Dates: start: 20220905, end: 20220925
  19. DEXAMETHASONE [Suspect]
     Active Substance: DEXAMETHASONE
     Route: 048
     Dates: start: 20220715, end: 20220804
  20. DEXAMETHASONE [Suspect]
     Active Substance: DEXAMETHASONE
     Route: 048
     Dates: start: 20220617, end: 20220707
  21. DEXAMETHASONE [Suspect]
     Active Substance: DEXAMETHASONE
     Route: 048
     Dates: start: 20220225, end: 20220317
  22. DEXAMETHASONE [Suspect]
     Active Substance: DEXAMETHASONE
     Dosage: BID
     Route: 048
     Dates: start: 20200910, end: 20200916
  23. DEXAMETHASONE [Suspect]
     Active Substance: DEXAMETHASONE
     Route: 048
     Dates: start: 20220520, end: 20220609
  24. DEXAMETHASONE [Suspect]
     Active Substance: DEXAMETHASONE
     Dosage: DOSE WAS NOT ADMINITERED:NO,
     Dates: start: 20220812, end: 20220904
  25. DEXAMETHASONE [Suspect]
     Active Substance: DEXAMETHASONE
     Dosage: DOSE WAS NOT ADMINITERED:NO,
     Dates: start: 20220805, end: 20220811
  26. DEXAMETHASONE [Suspect]
     Active Substance: DEXAMETHASONE
     Route: 048
     Dates: start: 20220325, end: 20220414
  27. DEXAMETHASONE [Suspect]
     Active Substance: DEXAMETHASONE
     Route: 048
     Dates: start: 20220422, end: 20220512
  28. REVLIMID [Suspect]
     Active Substance: LENALIDOMIDE
     Indication: Product used for unknown indication
     Route: 065
     Dates: start: 20201119, end: 20201125
  29. REVLIMID [Suspect]
     Active Substance: LENALIDOMIDE
     Route: 048
     Dates: start: 20201026, end: 20201030
  30. REVLIMID [Suspect]
     Active Substance: LENALIDOMIDE
     Dosage: 25 MILLIGRAM DAILY;
     Route: 048
     Dates: start: 20200918, end: 20201008
  31. REVLIMID [Suspect]
     Active Substance: LENALIDOMIDE
     Route: 065
     Dates: start: 20201016, end: 20201022
  32. REVLIMID [Suspect]
     Active Substance: LENALIDOMIDE
     Dosage: REASON IF DOSE WAS NOT ADMINISTERED.: REST PERIOD
     Route: 065
     Dates: start: 20201126, end: 20201202
  33. REVLIMID [Suspect]
     Active Substance: LENALIDOMIDE
     Dosage: 25 MILLIGRAM DAILY;
     Route: 048
     Dates: start: 20201023, end: 20201025
  34. REVLIMID [Suspect]
     Active Substance: LENALIDOMIDE
     Dosage: 25 MILLIGRAM DAILY;
     Route: 048
     Dates: start: 20201031, end: 20201102
  35. REVLIMID [Suspect]
     Active Substance: LENALIDOMIDE
     Dosage: 0 MG, SPECIFY THE OTHER REASON WHY DOSE WAS NOT ADMINISTERED.: DELAYED TREATMENT AS UNFORTUNATELY BL
     Route: 065
     Dates: start: 20201203, end: 20201210
  36. REVLIMID [Suspect]
     Active Substance: LENALIDOMIDE
     Dosage: 0 MG, REASON IF DOSE WAS NOT ADMINISTERED.: REST PERIOD
     Route: 065
     Dates: start: 20201009, end: 20201015
  37. REVLIMID [Suspect]
     Active Substance: LENALIDOMIDE
     Dosage: REASON IF DOSE WAS NOT ADMINISTERED.: REST PERIOD,
     Route: 065
     Dates: start: 20210101, end: 20210107
  38. REVLIMID [Suspect]
     Active Substance: LENALIDOMIDE
     Route: 048
     Dates: start: 20201103, end: 20201110
  39. REVLIMID [Suspect]
     Active Substance: LENALIDOMIDE
     Dosage: 25 MILLIGRAM DAILY;
     Route: 048
     Dates: start: 20201111, end: 20201118
  40. REVLIMID [Suspect]
     Active Substance: LENALIDOMIDE
     Dosage: 25 MILLIGRAM DAILY;
     Route: 048
     Dates: start: 20201211, end: 20201231
  41. REVLIMID [Suspect]
     Active Substance: LENALIDOMIDE
     Dosage: DOSE WAS NOT ADMINISTERED,
     Dates: start: 20220513, end: 20220619
  42. REVLIMID [Suspect]
     Active Substance: LENALIDOMIDE
     Dosage: DOSE WAS NOT ADMINISTERED,
     Dates: start: 20220318, end: 20220324
  43. REVLIMID [Suspect]
     Active Substance: LENALIDOMIDE
     Dosage: DOSE WAS NOT ADMINISTERED:NO,
     Dates: start: 20220926, end: 20221002
  44. REVLIMID [Suspect]
     Active Substance: LENALIDOMIDE
     Dosage: DOSE WAS NOT ADMINISTERED:NO,
     Dates: start: 20220812, end: 20220904
  45. REVLIMID [Suspect]
     Active Substance: LENALIDOMIDE
     Dosage: DOSE WAS NOT ADMINISTERED:NO,
     Route: 048
     Dates: start: 20220715, end: 20220804
  46. REVLIMID [Suspect]
     Active Substance: LENALIDOMIDE
     Dosage: DOSE WAS NOT ADMINISTERED:NO,
     Route: 048
     Dates: start: 20220520, end: 20220609
  47. REVLIMID [Suspect]
     Active Substance: LENALIDOMIDE
     Dosage: DOSE WAS NOT ADMINISTERED:NO,
     Dates: start: 20220422, end: 20220512
  48. REVLIMID [Suspect]
     Active Substance: LENALIDOMIDE
     Dates: start: 20220325, end: 20220414
  49. REVLIMID [Suspect]
     Active Substance: LENALIDOMIDE
     Route: 048
     Dates: start: 20220318, end: 20220324
  50. REVLIMID [Suspect]
     Active Substance: LENALIDOMIDE
     Dates: start: 20220805, end: 20220811
  51. REVLIMID [Suspect]
     Active Substance: LENALIDOMIDE
     Dosage: 15 MILLIGRAM DAILY;
     Route: 048
     Dates: start: 20220905, end: 20220925
  52. REVLIMID [Suspect]
     Active Substance: LENALIDOMIDE
     Dosage: DOSE WAS NOT ADMINISTERED: REST PERIOD,
     Route: 048
     Dates: start: 20220610, end: 20220616
  53. REVLIMID [Suspect]
     Active Substance: LENALIDOMIDE
     Dosage: DOSE WAS NOT ADMINISTERED,
     Dates: start: 20220415, end: 20220421
  54. REVLIMID [Suspect]
     Active Substance: LENALIDOMIDE
     Dosage: 15 MILLIGRAM DAILY; FREQUENCY: QAM,
     Route: 048
     Dates: start: 20220225, end: 20220317
  55. REVLIMID [Suspect]
     Active Substance: LENALIDOMIDE
     Dosage: REASONIFDOSEWASNOTADMINISTERED.:RESTPERIOD,
     Dates: start: 20220708, end: 20220714
  56. REVLIMID [Suspect]
     Active Substance: LENALIDOMIDE
     Route: 048
     Dates: start: 20220617, end: 20220707
  57. REVLIMID [Suspect]
     Active Substance: LENALIDOMIDE
     Route: 048
     Dates: start: 20220812, end: 20220901

REACTIONS (5)
  - Pyrexia [Recovered/Resolved]
  - Infection [Recovered/Resolved]
  - Neutropenia [Recovered/Resolved]
  - Anaemia [Recovering/Resolving]
  - Peripheral swelling [Recovered/Resolved]

NARRATIVE: CASE EVENT DATE: 20210422
